FAERS Safety Report 4286061-1 (Version None)
Quarter: 2004Q1

REPORT INFORMATION
  Report Type: 
  Country: None (occurrence: None)
  Receive Date: 20040203
  Receipt Date: 20040122
  Transmission Date: 20041129
  Serious: Yes (Hospitalization, Other)
  Sender: FDA-Public Use
  Company Number: HQWYE537523JAN04

PATIENT
  Age: 24 Month
  Sex: Female

DRUGS (3)
  1. CHILDREN'S ADVIL [Suspect]
     Indication: PYREXIA
     Dosage: 85 MG X 4/D ORAL
     Route: 048
     Dates: start: 20010803, end: 20010807
  2. AUGMENTIN [Suspect]
     Indication: PYREXIA
     Dosage: 590 MG/D ORAL
     Route: 048
     Dates: start: 20010806, end: 20010807
  3. PARACETAMOL (PARACETAMOL) [Suspect]
     Indication: PYREXIA
     Dosage: 165 MG X 4/D ORAL
     Route: 048
     Dates: start: 20010803

REACTIONS (3)
  - CELLULITIS [None]
  - CONDITION AGGRAVATED [None]
  - PYREXIA [None]
